FAERS Safety Report 9079671 (Version 1)
Quarter: 2013Q1

REPORT INFORMATION
  Report Type: Report from Study
  Country: US (occurrence: US)
  Receive Date: 20130215
  Receipt Date: 20130215
  Transmission Date: 20140127
  Serious: Yes (Hospitalization)
  Sender: FDA-Public Use
  Company Number: US-GLAXOSMITHKLINE-A0929015A

PATIENT
  Age: 59 Year
  Sex: Male
  Weight: 164.7 kg

DRUGS (21)
  1. DIGOXIN [Suspect]
     Indication: CARDIAC FAILURE
     Dosage: 125UG PER DAY
     Route: 048
     Dates: end: 20110412
  2. STUDY MEDICATION [Suspect]
     Indication: OSTEOARTHRITIS
     Dates: start: 20100413
  3. NEXIUM [Concomitant]
     Dates: start: 20100413, end: 20110412
  4. LEVOTHYROXINE [Concomitant]
     Dates: start: 2001
  5. KETOCONAZOLE [Concomitant]
  6. FUROSEMIDE [Concomitant]
  7. ADVAIR DISKUS [Concomitant]
  8. VYTORIN [Concomitant]
  9. FLONASE [Concomitant]
  10. BACLOFEN [Concomitant]
  11. FISH OIL [Concomitant]
  12. VALIUM [Concomitant]
  13. CYMBALTA [Concomitant]
  14. COREG [Concomitant]
  15. COMBIVENT [Concomitant]
  16. ACETYLSALICYLIC ACID [Concomitant]
  17. PARACETAMOL + HYDROCODONE BITARTRATE [Concomitant]
  18. INSULIN [Concomitant]
     Dates: start: 20100201
  19. LISINOPRIL [Concomitant]
  20. AMIODARONE [Concomitant]
     Dates: start: 20110413
  21. DIAZEPAM [Concomitant]

REACTIONS (1)
  - Ventricular fibrillation [Recovered/Resolved]
